FAERS Safety Report 6640684-0 (Version None)
Quarter: 2010Q1

REPORT INFORMATION
  Report Type: 
  Country: None (occurrence: None)
  Receive Date: 20100318
  Receipt Date: 20100310
  Transmission Date: 20100710
  Serious: Yes (Hospitalization)
  Sender: FDA-Public Use
  Company Number: JP-ASTRAZENECA-2010SE11472

PATIENT
  Age: 65 Year
  Sex: Female

DRUGS (6)
  1. SEROQUEL [Suspect]
     Indication: SCHIZOPHRENIA
     Route: 048
     Dates: start: 20100101, end: 20100301
  2. BLONANSERIN [Concomitant]
     Route: 048
     Dates: start: 20091101, end: 20100301
  3. FLUNITRAZEPAM [Concomitant]
     Route: 048
     Dates: start: 19990101, end: 20100301
  4. BROTIZOLAM [Concomitant]
     Route: 048
     Dates: start: 19990101, end: 20100301
  5. LEVOMEPROMAZINE MALEATE [Concomitant]
     Route: 048
     Dates: start: 19990101, end: 20100301
  6. SODIUM VALPROATE [Concomitant]
     Route: 048
     Dates: start: 20100101, end: 20100301

REACTIONS (2)
  - BLOOD CREATINE PHOSPHOKINASE INCREASED [None]
  - ILEUS [None]
